FAERS Safety Report 11294566 (Version 1)
Quarter: 2015Q2

REPORT INFORMATION
  Report Type: Spontaneous
  Country: US (occurrence: None)
  Receive Date: 20150623
  Receipt Date: 20150623
  Transmission Date: 20150821
  Serious: Yes (Other)
  Sender: FDA-Public Use
  Company Number: RB-66036-2014

PATIENT
  Age: 46 Year
  Sex: Female

DRUGS (3)
  1. GUAIFENESIN W/DEXTROMETHORPHAN 1200 MG (RECKITT BENCKISER) [Suspect]
     Active Substance: DEXTROMETHORPHAN\GUAIFENESIN
     Indication: RESPIRATORY TRACT CONGESTION
     Dosage: (1200 MG QD, TOOK 1 TABLET ON 12-MAY-2014 (ONE TIME ONLY) ORAL)
     Route: 048
     Dates: start: 20140512
  2. GUAIFENESIN W/DEXTROMETHORPHAN 1200 MG (RECKITT BENCKISER) [Suspect]
     Active Substance: DEXTROMETHORPHAN\GUAIFENESIN
     Indication: RHINORRHOEA
     Dosage: (1200 MG QD, TOOK 1 TABLET ON 12-MAY-2014 (ONE TIME ONLY) ORAL)
     Route: 048
     Dates: start: 20140512
  3. SYNTHROID [Concomitant]
     Active Substance: LEVOTHYROXINE SODIUM

REACTIONS (4)
  - Hypertension [None]
  - Palpitations [None]
  - Dehydration [None]
  - Diarrhoea [None]

NARRATIVE: CASE EVENT DATE: 20140512
